FAERS Safety Report 23406911 (Version 2)
Quarter: 2024Q1

REPORT INFORMATION
  Report Type: Spontaneous
  Country: IT (occurrence: IT)
  Receive Date: 20240116
  Receipt Date: 20240206
  Transmission Date: 20240409
  Serious: Yes (Other)
  Sender: FDA-Public Use
  Company Number: None

PATIENT
  Age: 4 Year
  Sex: Male

DRUGS (5)
  1. DEXAMETHASONE [Suspect]
     Active Substance: DEXAMETHASONE
     Indication: Optic glioma
     Dosage: 1.5 MG X 3/DAY AND FROM 05/24/2023 GRADUALLY REDUCED UNTIL SUSPENSION.
     Route: 048
     Dates: start: 20230513, end: 20230717
  2. EVEROLIMUS [Suspect]
     Active Substance: EVEROLIMUS
     Indication: Optic glioma
     Dosage: 6 MG/DAY
     Route: 048
  3. BEVACIZUMAB [Concomitant]
     Active Substance: BEVACIZUMAB
     Indication: Optic glioma
     Dosage: 150MG EVERY 2 WEEKS (10MG/KG)
     Route: 042
  4. AMLODIPINE [Concomitant]
     Active Substance: AMLODIPINE BESYLATE
     Indication: Hypertension
     Route: 048
  5. RAMIPRIL [Concomitant]
     Active Substance: RAMIPRIL
     Indication: Hypertension
     Route: 048

REACTIONS (2)
  - Hypercholesterolaemia [Recovered/Resolved]
  - Off label use [Recovered/Resolved]

NARRATIVE: CASE EVENT DATE: 20230524
